FAERS Safety Report 5383394-2 (Version None)
Quarter: 2007Q3

REPORT INFORMATION
  Report Type: 
  Country: None (occurrence: None)
  Receive Date: 20070710
  Receipt Date: 20070629
  Transmission Date: 20080115
  Serious: Yes (Other)
  Sender: FDA-Public Use
  Company Number: BR-PFIZER INC-2007054402

PATIENT
  Age: 32 Year
  Sex: Female
  Weight: 69 kg

DRUGS (3)
  1. ALDACTONE [Suspect]
     Indication: FLUID RETENTION
     Route: 048
  2. ALDACTONE [Suspect]
     Indication: HYPERTENSION
  3. CYPROTERONE ACETATE [Concomitant]
     Indication: HAIR GROWTH ABNORMAL

REACTIONS (2)
  - RASH PRURITIC [None]
  - SKIN HAEMORRHAGE [None]
